FAERS Safety Report 25573606 (Version 1)
Quarter: 2025Q3

REPORT INFORMATION
  Report Type: Spontaneous
  Country: US (occurrence: None)
  Receive Date: 20250717
  Receipt Date: 20250717
  Transmission Date: 20251020
  Serious: Yes (Disabling, Other)
  Sender: FDA-CTU
  Company Number: None

PATIENT
  Age: 58 Year
  Sex: Female
  Weight: 64.41 kg

DRUGS (5)
  1. MOMETASONE FUROATE [Suspect]
     Active Substance: MOMETASONE FUROATE
     Indication: Dermatitis
     Dosage: FREQUENCY : TWICE A DAY;?APPLIED TO A SURFACE, USUALLY THE SKIN
     Route: 061
     Dates: start: 20250428, end: 20250515
  2. MOMETASONE FUROATE [Suspect]
     Active Substance: MOMETASONE FUROATE
     Indication: Sensitive skin
  3. LOSARTAN [Concomitant]
     Active Substance: LOSARTAN
  4. ASPIRIN [Concomitant]
     Active Substance: ASPIRIN
  5. CALCIUM [Concomitant]
     Active Substance: CALCIUM

REACTIONS (8)
  - Product substitution issue [None]
  - Skin injury [None]
  - Alopecia [None]
  - Skin burning sensation [None]
  - Paraesthesia [None]
  - Pain of skin [None]
  - Hair injury [None]
  - Emotional distress [None]

NARRATIVE: CASE EVENT DATE: 20250517
